FAERS Safety Report 4863479-7 (Version None)
Quarter: 2005Q4

REPORT INFORMATION
  Report Type: 
  Country: None (occurrence: None)
  Receive Date: 20051222
  Receipt Date: 20050222
  Transmission Date: 20060501
  Serious: No
  Sender: FDA-Public Use
  Company Number: US-GLAXOSMITHKLINE-A0546759A

PATIENT
  Age: 60 Year
  Sex: Male

DRUGS (1)
  1. FLONASE [Suspect]
     Dosage: 2SPR PER DAY
     Route: 045
     Dates: start: 20000101

REACTIONS (3)
  - DRUG INEFFECTIVE [None]
  - RHINORRHOEA [None]
  - SNEEZING [None]
